FAERS Safety Report 22344341 (Version 1)
Quarter: 2023Q2

REPORT INFORMATION
  Report Type: Spontaneous
  Country: US (occurrence: None)
  Receive Date: 20230518
  Receipt Date: 20230518
  Transmission Date: 20230721
  Serious: Yes (Other)
  Sender: FDA-Public Use
  Company Number: None

PATIENT
  Age: 50 Year
  Sex: Female
  Weight: 56.25 kg

DRUGS (1)
  1. INJECTAFER [Suspect]
     Active Substance: FERRIC CARBOXYMALTOSE
     Indication: Iron deficiency anaemia
     Dates: start: 20230403

REACTIONS (6)
  - Headache [None]
  - Dizziness [None]
  - Heart rate increased [None]
  - Blood phosphorus decreased [None]
  - Toothache [None]
  - Asthma [None]

NARRATIVE: CASE EVENT DATE: 20230403
